FAERS Safety Report 9465520 (Version 1)
Quarter: 2013Q3

REPORT INFORMATION
  Report Type: Spontaneous
  Country: CH (occurrence: CH)
  Receive Date: 20130820
  Receipt Date: 20130820
  Transmission Date: 20140515
  Serious: Yes (Hospitalization)
  Sender: FDA-Public Use
  Company Number: CH-CELGENEUS-151-21660-13080822

PATIENT
  Sex: Male

DRUGS (2)
  1. ABRAXANE [Suspect]
     Indication: PANCREATIC CARCINOMA
     Dosage: 200 MILLIGRAM
     Route: 065
     Dates: start: 20130718, end: 20130718
  2. ABRAXANE [Suspect]
     Dosage: 200 MILLIGRAM
     Route: 065
     Dates: start: 20130729, end: 20130729

REACTIONS (1)
  - Cholangitis [Unknown]
